FAERS Safety Report 16290167 (Version 1)
Quarter: 2019Q2

REPORT INFORMATION
  Report Type: Report from Study
  Country: US (occurrence: US)
  Receive Date: 20190509
  Receipt Date: 20190509
  Transmission Date: 20190711
  Serious: Yes (Hospitalization, Other)
  Sender: FDA-Public Use
  Company Number: US-JNJFOC-20190402305

PATIENT
  Sex: Male

DRUGS (21)
  1. THEOPHYLLINE [Concomitant]
     Active Substance: THEOPHYLLINE ANHYDROUS
  2. NAPROZEN [Concomitant]
     Active Substance: NAPROXEN
  3. LISINOPRIL. [Concomitant]
     Active Substance: LISINOPRIL
  4. PROMETHAZINE HCL [Concomitant]
     Active Substance: PROMETHAZINE HYDROCHLORIDE
  5. IMBRUVICA [Suspect]
     Active Substance: IBRUTINIB
     Indication: MANTLE CELL LYMPHOMA
     Route: 048
     Dates: start: 20170324
  6. IMBRUVICA [Suspect]
     Active Substance: IBRUTINIB
     Indication: MANTLE CELL LYMPHOMA
     Route: 048
     Dates: start: 20180407
  7. SYMBICORT [Concomitant]
     Active Substance: BUDESONIDE\FORMOTEROL FUMARATE DIHYDRATE
  8. TIZANIDINE HCL [Concomitant]
     Active Substance: TIZANIDINE HYDROCHLORIDE
  9. LORATADINE. [Concomitant]
     Active Substance: LORATADINE
  10. VENLAFAXINE HYDROCHLORIDE. [Concomitant]
     Active Substance: VENLAFAXINE HYDROCHLORIDE
  11. XANAX [Concomitant]
     Active Substance: ALPRAZOLAM
  12. IMBRUVICA [Suspect]
     Active Substance: IBRUTINIB
     Indication: MANTLE CELL LYMPHOMA
     Route: 048
     Dates: start: 20170126, end: 20180406
  13. SINGULAIR [Concomitant]
     Active Substance: MONTELUKAST SODIUM
  14. LEVAQUIN [Concomitant]
     Active Substance: LEVOFLOXACIN
  15. OMEPRAZOLE. [Concomitant]
     Active Substance: OMEPRAZOLE
  16. PREDNISONE. [Concomitant]
     Active Substance: PREDNISONE
  17. FENOFIBRATE. [Concomitant]
     Active Substance: FENOFIBRATE
  18. ALBUTEROL. [Concomitant]
     Active Substance: ALBUTEROL
  19. AMITRIPTYLINE HCL [Concomitant]
     Active Substance: AMITRIPTYLINE
  20. TYLENOL [Concomitant]
     Active Substance: ACETAMINOPHEN
  21. ABILIFY [Concomitant]
     Active Substance: ARIPIPRAZOLE

REACTIONS (2)
  - Pneumonia [Unknown]
  - Lung disorder [Unknown]
